FAERS Safety Report 9238777 (Version 1)
Quarter: 2013Q2

REPORT INFORMATION
  Report Type: Spontaneous
  Country: US (occurrence: None)
  Receive Date: 20130417
  Receipt Date: 20130417
  Transmission Date: 20140414
  Serious: Yes (Hospitalization)
  Sender: FDA-Public Use
  Company Number: None

PATIENT
  Age: 57 Year
  Sex: Female
  Weight: 48 kg

DRUGS (2)
  1. IFOSFAMIDE [Suspect]
  2. LOPERAMIDE [Concomitant]

REACTIONS (3)
  - Convulsion [None]
  - Syncope [None]
  - Dehydration [None]
